FAERS Safety Report 5411658-2 (Version None)
Quarter: 2007Q3

REPORT INFORMATION
  Report Type: 
  Country: None (occurrence: None)
  Receive Date: 20070810
  Receipt Date: 20070801
  Transmission Date: 20080115
  Serious: Yes (Other)
  Sender: FDA-Public Use
  Company Number: IL-PFIZER INC-2007064437

PATIENT
  Age: 65 Year
  Sex: Female

DRUGS (6)
  1. LIPITOR [Suspect]
     Route: 048
  2. CALCIUM CHANNEL BLOCKERS [Concomitant]
  3. BETA BLOCKING AGENTS [Concomitant]
  4. INSULIN [Concomitant]
  5. PLAVIX [Concomitant]
  6. ACETYLSALICYLIC ACID SRT [Concomitant]

REACTIONS (4)
  - ABDOMINAL PAIN UPPER [None]
  - ALANINE AMINOTRANSFERASE INCREASED [None]
  - CHOLELITHIASIS [None]
  - GAMMA-GLUTAMYLTRANSFERASE INCREASED [None]
